FAERS Safety Report 12885193 (Version 1)
Quarter: 2016Q4

REPORT INFORMATION
  Report Type: Spontaneous
  Country: US (occurrence: US)
  Receive Date: 20161026
  Receipt Date: 20161026
  Transmission Date: 20170207
  Serious: Yes (Death, Hospitalization)
  Sender: FDA-Public Use
  Company Number: US-PFIZER INC-2016495956

PATIENT
  Age: 60 Year
  Sex: Male
  Weight: 100 kg

DRUGS (1)
  1. CAMPTOSAR [Suspect]
     Active Substance: IRINOTECAN HYDROCHLORIDE
     Indication: COLON CANCER
     Dosage: UNK
     Dates: start: 201510, end: 201608

REACTIONS (4)
  - Hepatic pain [Unknown]
  - Weight decreased [Unknown]
  - Neoplasm progression [Fatal]
  - Heart rate increased [Unknown]

NARRATIVE: CASE EVENT DATE: 20160722
